FAERS Safety Report 18077181 (Version 2)
Quarter: 2020Q3

REPORT INFORMATION
  Report Type: Spontaneous
  Country: PL (occurrence: PL)
  Receive Date: 20200727
  Receipt Date: 20200804
  Transmission Date: 20201103
  Serious: Yes (Death, Other)
  Sender: FDA-Public Use
  Company Number: PL-SAMSUNG BIOEPIS-SB-2020-23368

PATIENT
  Sex: Female

DRUGS (4)
  1. CAPECITABINE. [Suspect]
     Active Substance: CAPECITABINE
     Indication: PRODUCT USED FOR UNKNOWN INDICATION
     Dosage: UNKNOWN
     Route: 065
     Dates: start: 201901
  2. TRASTUZUMAB EMTANSINE [Suspect]
     Active Substance: ADO-TRASTUZUMAB EMTANSINE
     Indication: HER2 POSITIVE BREAST CANCER
     Dosage: UNKNOWN, SOLUTION
     Route: 065
     Dates: start: 201905
  3. TRASTUZUMAB. [Suspect]
     Active Substance: TRASTUZUMAB
     Dosage: UNKNOWN
     Route: 065
     Dates: start: 2018, end: 2018
  4. TRASTUZUMAB. [Suspect]
     Active Substance: TRASTUZUMAB
     Indication: HER2 POSITIVE BREAST CANCER
     Dosage: UNKNOWN
     Route: 065
     Dates: start: 2017, end: 2017

REACTIONS (8)
  - Death [Fatal]
  - Headache [Unknown]
  - Dizziness [Unknown]
  - Brain oedema [Unknown]
  - Breast cancer metastatic [Unknown]
  - Nausea [Unknown]
  - Intracranial pressure increased [Unknown]
  - Neutropenia [Unknown]
